FAERS Safety Report 8612145-0 (Version None)
Quarter: 2012Q3

REPORT INFORMATION
  Report Type: 
  Country: None (occurrence: None)
  Receive Date: 20120822
  Receipt Date: 20120809
  Transmission Date: 20120928
  Serious: No
  Sender: FDA-Public Use
  Company Number: US-ASTRAZENECA-2012SE54673

PATIENT
  Age: 29 Year
  Sex: Female
  Weight: 55.3 kg

DRUGS (22)
  1. SEROQUEL [Suspect]
     Route: 048
  2. SEROQUEL [Suspect]
     Route: 048
  3. SEROQUEL [Suspect]
     Route: 048
  4. SEROQUEL [Suspect]
     Route: 048
     Dates: end: 20120701
  5. XANAX [Concomitant]
     Dosage: ONCE
  6. SEROQUEL [Suspect]
     Route: 048
     Dates: start: 20100101
  7. SEROQUEL [Suspect]
     Route: 048
     Dates: end: 20120701
  8. SEROQUEL [Suspect]
     Indication: SLEEP DISORDER
     Route: 048
     Dates: start: 20080101
  9. SEROQUEL [Suspect]
     Route: 048
     Dates: start: 20100101
  10. SEROQUEL [Suspect]
     Route: 048
  11. SEROQUEL [Suspect]
     Route: 048
  12. SEROQUEL [Suspect]
     Route: 048
     Dates: end: 20120701
  13. SEROQUEL [Suspect]
     Route: 048
  14. SEROQUEL [Suspect]
     Indication: PSYCHOTIC DISORDER
     Route: 048
     Dates: start: 20080101
  15. SEROQUEL [Suspect]
     Indication: DEPRESSION
     Route: 048
     Dates: start: 20080101
  16. SEROQUEL [Suspect]
     Route: 048
     Dates: start: 20100101
  17. SEROQUEL [Suspect]
     Route: 048
     Dates: start: 20100101
  18. SEROQUEL [Suspect]
     Route: 048
  19. SEROQUEL [Suspect]
     Route: 048
  20. SEROQUEL [Suspect]
     Route: 048
     Dates: end: 20120701
  21. SEROQUEL [Suspect]
     Indication: POST-TRAUMATIC STRESS DISORDER
     Route: 048
     Dates: start: 20080101
  22. LORTAB [Concomitant]
     Indication: PAIN
     Dosage: AS NEEDED

REACTIONS (21)
  - FEELING ABNORMAL [None]
  - HEADACHE [None]
  - BODY TEMPERATURE INCREASED [None]
  - LIBIDO INCREASED [None]
  - URINE OUTPUT INCREASED [None]
  - URINARY TRACT INFECTION [None]
  - URINE ABNORMALITY [None]
  - VAGINAL HAEMORRHAGE [None]
  - EMOTIONAL DISTRESS [None]
  - AGITATION [None]
  - BLOOD CHOLESTEROL INCREASED [None]
  - MICTURITION URGENCY [None]
  - WEIGHT DECREASED [None]
  - INTENTIONAL DRUG MISUSE [None]
  - BLOOD FOLLICLE STIMULATING HORMONE INCREASED [None]
  - THYROID FUNCTION TEST ABNORMAL [None]
  - DIARRHOEA [None]
  - VAGINAL DISCHARGE [None]
  - POLLAKIURIA [None]
  - PAIN [None]
  - BLOOD PROLACTIN INCREASED [None]
